FAERS Safety Report 24239526 (Version 1)
Quarter: 2024Q3

REPORT INFORMATION
  Report Type: Spontaneous
  Country: US (occurrence: US)
  Receive Date: 20240822
  Receipt Date: 20240822
  Transmission Date: 20241016
  Serious: No
  Sender: AVADEL CNS PHARMA
  Company Number: US-AVADEL CNS PHARMACEUTICALS, LLC-2024AVA01123

PATIENT
  Sex: Female
  Weight: 92.063 kg

DRUGS (20)
  1. LUMRYZ [Suspect]
     Active Substance: SODIUM OXYBATE
     Indication: Narcolepsy
     Dosage: 4.5 MG, ONCE NIGHTLY AT BEDTIME
     Route: 048
     Dates: start: 202406
  2. LUMRYZ [Suspect]
     Active Substance: SODIUM OXYBATE
     Indication: Cataplexy
  3. LUMRYZ [Suspect]
     Active Substance: SODIUM OXYBATE
     Indication: Hypersomnia
  4. REMICADE [Concomitant]
     Active Substance: INFLIXIMAB
     Dosage: UNK, VIAL
  5. IBUPROFEN [Concomitant]
     Active Substance: IBUPROFEN
  6. UNSPECIFIED INGREDIENT [Concomitant]
     Active Substance: UNSPECIFIED INGREDIENT
  7. DULOXETINE HYDROCHLORIDE [Concomitant]
     Active Substance: DULOXETINE HYDROCHLORIDE
     Dosage: UNK,DR
  8. DEXTROAMPHETAMINE SULFATE [Concomitant]
     Active Substance: DEXTROAMPHETAMINE SULFATE
  9. TRELEGY ELLIPTA [Concomitant]
     Active Substance: FLUTICASONE FUROATE\UMECLIDINIUM BROMIDE\VILANTEROL TRIFENATATE
  10. SYNTHROID [Concomitant]
     Active Substance: LEVOTHYROXINE SODIUM
  11. LORATADINE [Concomitant]
     Active Substance: LORATADINE
  12. ALLOPURINOL [Concomitant]
     Active Substance: ALLOPURINOL
  13. BACLOFEN [Concomitant]
     Active Substance: BACLOFEN
  14. METHOTREXATE [Concomitant]
     Active Substance: METHOTREXATE
  15. ALBUTEROL SULFATE [Concomitant]
     Active Substance: ALBUTEROL SULFATE
  16. PREDNISONE [Concomitant]
     Active Substance: PREDNISONE
  17. ESTRADIOL [Concomitant]
     Active Substance: ESTRADIOL
     Dosage: UNK, ONCE WEEKLY
  18. MAGNESIUM [Concomitant]
     Active Substance: MAGNESIUM
  19. VITAMIN D3 [Concomitant]
     Active Substance: CHOLECALCIFEROL
  20. PANTOPRAZOLE SODIUM [Concomitant]
     Active Substance: PANTOPRAZOLE SODIUM
     Dosage: UNK, DR

REACTIONS (5)
  - Insomnia [Not Recovered/Not Resolved]
  - Initial insomnia [Not Recovered/Not Resolved]
  - Middle insomnia [Not Recovered/Not Resolved]
  - Drug ineffective [Not Recovered/Not Resolved]
  - Intentional dose omission [Not Recovered/Not Resolved]

NARRATIVE: CASE EVENT DATE: 20240101
